FAERS Safety Report 18203252 (Version 1)
Quarter: 2020Q3

REPORT INFORMATION
  Report Type: Spontaneous
  Country: US (occurrence: US)
  Receive Date: 20200827
  Receipt Date: 20200827
  Transmission Date: 20201103
  Serious: Yes (Hospitalization, Other)
  Sender: FDA-Public Use
  Company Number: US-NOVOPROD-748544

PATIENT
  Age: 53 Year
  Sex: Male

DRUGS (1)
  1. NOVOLOG [Suspect]
     Active Substance: INSULIN ASPART
     Indication: TYPE 1 DIABETES MELLITUS
     Dosage: SLIDING SCALE
     Route: 058
     Dates: start: 2003

REACTIONS (4)
  - Thyroid cancer [Unknown]
  - Thyroid mass [Unknown]
  - Multiple sclerosis [Unknown]
  - Encephalopathy [Unknown]

NARRATIVE: CASE EVENT DATE: 2014
